FAERS Safety Report 16164379 (Version 1)
Quarter: 2019Q2

REPORT INFORMATION
  Report Type: Spontaneous
  Country: PL (occurrence: PL)
  Receive Date: 20190405
  Receipt Date: 20190405
  Transmission Date: 20190711
  Serious: Yes (Life-Threatening, Hospitalization)
  Sender: FDA-Public Use
  Company Number: PL-FERRINGPH-2019FE01677

PATIENT

DRUGS (2)
  1. AROMEK [Concomitant]
     Indication: PRODUCT USED FOR UNKNOWN INDICATION
  2. MENOPUR [Suspect]
     Active Substance: FOLLITROPIN\LUTEINIZING HORMONE
     Indication: OVULATION INDUCTION
     Dosage: 450 IU, 1 TIME DAILY
     Route: 065
     Dates: start: 20190326, end: 20190326

REACTIONS (2)
  - Loss of consciousness [Recovering/Resolving]
  - Seizure [Recovering/Resolving]

NARRATIVE: CASE EVENT DATE: 20190326
